FAERS Safety Report 5523848-9 (Version None)
Quarter: 2007Q4

REPORT INFORMATION
  Report Type: 
  Country: None (occurrence: None)
  Receive Date: 20071121
  Receipt Date: 20071112
  Transmission Date: 20080405
  Serious: Yes (Hospitalization)
  Sender: FDA-Public Use
  Company Number: DK-ABBOTT-07P-044-0422825-00

PATIENT
  Sex: Male
  Weight: 89 kg

DRUGS (2)
  1. TARKA [Suspect]
     Indication: HYPERTENSION
     Dosage: 180MG/2MG
     Route: 048
     Dates: start: 20060407, end: 20061101
  2. HJERDYL [Concomitant]
     Indication: ANTICOAGULANT THERAPY
     Dates: start: 20041025

REACTIONS (1)
  - OSTEOMYELITIS [None]
